FAERS Safety Report 20920769 (Version 1)
Quarter: 2022Q2

REPORT INFORMATION
  Report Type: Spontaneous
  Country: US (occurrence: None)
  Receive Date: 20220606
  Receipt Date: 20220606
  Transmission Date: 20220720
  Serious: Yes (Life-Threatening)
  Sender: FDA-Public Use
  Company Number: None

PATIENT
  Age: 49 Year
  Sex: Male
  Weight: 108 kg

DRUGS (1)
  1. .DELTA.8-TETRAHYDROCANNABINOL\HERBALS [Suspect]
     Active Substance: .DELTA.8-TETRAHYDROCANNABINOL\HERBALS
     Indication: Product used for unknown indication
     Dosage: OTHER STRENGTH : 12 OZ DELTA 8 BEER;?OTHER QUANTITY : 12 OUNCE(S);?OTHER FREQUENCY : DRANK IT ONCE.;
     Route: 048

REACTIONS (2)
  - Fear [None]
  - Near death experience [None]

NARRATIVE: CASE EVENT DATE: 20220605
